FAERS Safety Report 20459875 (Version 2)
Quarter: 2024Q1

REPORT INFORMATION
  Report Type: Other
  Country: US (occurrence: None)
  Receive Date: 20220211
  Receipt Date: 20240130
  Transmission Date: 20240409
  Serious: Yes (Other)
  Sender: FDA-Public Use
  Company Number: US-ROCHE-2695487

PATIENT

DRUGS (8)
  1. BEVACIZUMAB [Suspect]
     Active Substance: BEVACIZUMAB
     Indication: Colorectal cancer metastatic
     Dosage: DAY 1 OF 14 DAY CYCLE.
     Route: 042
  2. IRINOTECAN [Suspect]
     Active Substance: IRINOTECAN
     Indication: Colorectal cancer metastatic
     Route: 042
  3. LEUCOVORIN [Suspect]
     Active Substance: LEUCOVORIN\LEUCOVORIN CALCIUM
     Indication: Colorectal cancer metastatic
     Route: 042
  4. FLUOROURACIL [Suspect]
     Active Substance: FLUOROURACIL
     Indication: Colorectal cancer metastatic
     Route: 040
  5. FLUOROURACIL [Suspect]
     Active Substance: FLUOROURACIL
     Route: 042
  6. ONVANSERTIB [Suspect]
     Active Substance: ONVANSERTIB
     Indication: Colorectal cancer metastatic
     Dosage: DAY 1 THROUGH 5 EVERY 14-DAYS OVER TWO TREATMENT COURSES (1 CYCLE)
     Route: 048
  7. ONVANSERTIB [Suspect]
     Active Substance: ONVANSERTIB
     Route: 048
  8. ONVANSERTIB [Suspect]
     Active Substance: ONVANSERTIB
     Route: 048

REACTIONS (28)
  - Neutropenia [Recovered/Resolved]
  - Fatigue [Recovered/Resolved]
  - Nausea [Recovered/Resolved]
  - Diarrhoea [Recovered/Resolved]
  - Abdominal pain [Recovered/Resolved]
  - Mucosal inflammation [Unknown]
  - White blood cell count decreased [Unknown]
  - Platelet count decreased [Unknown]
  - Hypertension [Recovered/Resolved]
  - Anaemia [Unknown]
  - Vomiting [Recovered/Resolved]
  - Infection [Unknown]
  - Haemorrhage [Unknown]
  - Alanine aminotransferase increased [Recovered/Resolved]
  - Febrile neutropenia [Unknown]
  - Hyperphosphataemia [Recovered/Resolved]
  - Leukopenia [Recovered/Resolved]
  - Thrombocytopenia [Recovered/Resolved]
  - Stomatitis [Recovered/Resolved]
  - Aspartate aminotransferase increased [Recovered/Resolved]
  - Blood alkaline phosphatase increased [Recovered/Resolved]
  - Abdominal abscess [Recovered/Resolved]
  - Hepatitis B [Recovered/Resolved]
  - Sepsis [Recovered/Resolved]
  - Urinary tract infection [Recovered/Resolved]
  - Liver abscess [Recovered/Resolved]
  - Intestinal obstruction [Recovered/Resolved]
  - Febrile neutropenia [Recovered/Resolved]
